FAERS Safety Report 6782496-3 (Version None)
Quarter: 2010Q2

REPORT INFORMATION
  Report Type: 
  Country: None (occurrence: None)
  Receive Date: 20100616
  Receipt Date: 20100603
  Transmission Date: 20101027
  Serious: Yes (Hospitalization)
  Sender: FDA-Public Use
  Company Number: 2010-1747

PATIENT
  Age: 51 Year
  Sex: Female
  Weight: 51.7 kg

DRUGS (6)
  1. DYSPORT [Suspect]
     Indication: OFF LABEL USE
     Dosage: 100 UNITS (100 UNITS, SINGLE)
     Dates: start: 20100423, end: 20100423
  2. DYSPORT [Suspect]
     Indication: SKIN WRINKLING
     Dosage: 100 UNITS (100 UNITS, SINGLE)
     Dates: start: 20100423, end: 20100423
  3. . [Concomitant]
  4. RESTYLANE (HYALURONIC ACID) [Concomitant]
  5. RADIESSE (CALCIUM COMPUNDS) [Concomitant]
  6. MULTIVITAMIN (MULTIVITAMIN) [Concomitant]

REACTIONS (20)
  - ANXIETY [None]
  - CHEST DISCOMFORT [None]
  - DIZZINESS [None]
  - DRY MOUTH [None]
  - DYSPHAGIA [None]
  - DYSPNOEA [None]
  - EYELID PTOSIS [None]
  - FATIGUE [None]
  - FEELING ABNORMAL [None]
  - HEADACHE [None]
  - HYPERACUSIS [None]
  - HYPOAESTHESIA [None]
  - INFLAMMATION [None]
  - MUSCLE TIGHTNESS [None]
  - NERVOUS SYSTEM DISORDER [None]
  - PARAESTHESIA [None]
  - PHOTOPHOBIA [None]
  - SENSATION OF PRESSURE [None]
  - VISUAL IMPAIRMENT [None]
  - WEIGHT DECREASED [None]
